FAERS Safety Report 17959986 (Version 1)
Quarter: 2020Q2

REPORT INFORMATION
  Report Type: Spontaneous
  Country: CN (occurrence: CN)
  Receive Date: 20200630
  Receipt Date: 20200630
  Transmission Date: 20200714
  Serious: Yes (Hospitalization)
  Sender: FDA-Public Use
  Company Number: CN-BAXTER-2020BAX013159

PATIENT
  Age: 7 Year
  Sex: Female
  Weight: 26.5 kg

DRUGS (15)
  1. 0.9% SODIUM CHLORIDE INJECTION [Suspect]
     Active Substance: SODIUM CHLORIDE
     Dosage: HEXIN + SODIUM CHLORIDE
     Route: 041
     Dates: start: 20200604, end: 20200608
  2. MESNA. [Suspect]
     Active Substance: MESNA
     Dosage: DOSE REINTRODUCED
     Route: 042
     Dates: start: 202006
  3. ENDOXAN [Suspect]
     Active Substance: CYCLOPHOSPHAMIDE
     Indication: NEUROBLASTOMA RECURRENT
     Dosage: ENDOXAN + SODIUM CHLORIDE
     Route: 041
     Dates: start: 20200604, end: 20200608
  4. 0.9% SODIUM CHLORIDE INJECTION [Suspect]
     Active Substance: SODIUM CHLORIDE
     Dosage: DOSE REINTRODUCED, ENDOXAN + SODIUM CHLORIDE
     Route: 041
     Dates: start: 202006
  5. HEXIN (TOPOTECAN HYDROCHLORIDE) [Suspect]
     Indication: NEUROBLASTOMA RECURRENT
     Dosage: HEXIN + SODIUM CHLORIDE 28 ML
     Route: 041
     Dates: start: 20200604, end: 20200608
  6. ONDANSETRON HYDROCHLORIDE. [Suspect]
     Active Substance: ONDANSETRON HYDROCHLORIDE
     Dosage: ONDANSETRON + 0.9% NS, DOSE REINTRODUCED
     Route: 041
     Dates: start: 202006
  7. HEXIN (TOPOTECAN HYDROCHLORIDE) [Suspect]
     Dosage: DOSE REINTRODUCED, HEXIN + SODIUM CHLORIDE
     Route: 041
     Dates: start: 202006
  8. RECOMBINANT HUMAN GRANULOCYTE STIMULATING FACTOR [Concomitant]
     Indication: PROPHYLAXIS
     Route: 058
     Dates: start: 20200602
  9. ENDOXAN [Suspect]
     Active Substance: CYCLOPHOSPHAMIDE
     Dosage: ENDOXAN + SODIUM CHLORIDE, DOSE REINTRODUCED
     Route: 041
     Dates: start: 202006
  10. 0.9% SODIUM CHLORIDE INJECTION [Suspect]
     Active Substance: SODIUM CHLORIDE
     Dosage: ONDANSETRON + 0.9% NS, DOSE REINTRODUCED
     Route: 041
     Dates: start: 202006
  11. ONDANSETRON HYDROCHLORIDE. [Suspect]
     Active Substance: ONDANSETRON HYDROCHLORIDE
     Indication: ANTIEMETIC SUPPORTIVE CARE
     Dosage: ONDANSETRON + 0.9% NS 25ML
     Route: 041
     Dates: start: 20200604, end: 20200608
  12. 0.9% SODIUM CHLORIDE INJECTION [Suspect]
     Active Substance: SODIUM CHLORIDE
     Indication: MEDICATION DILUTION
     Dosage: ENDOXAN + SODIUM CHLORIDE
     Route: 041
     Dates: start: 20200604, end: 20200608
  13. 0.9% SODIUM CHLORIDE INJECTION [Suspect]
     Active Substance: SODIUM CHLORIDE
     Dosage: DOSE REINTRODUCED, HEXIN + SODIUM CHLORIDE
     Route: 041
     Dates: start: 202006
  14. 0.9% SODIUM CHLORIDE INJECTION [Suspect]
     Active Substance: SODIUM CHLORIDE
     Dosage: ONDANSETRON + 0.9% NS 25ML
     Route: 041
     Dates: start: 20200604, end: 20200608
  15. MESNA. [Suspect]
     Active Substance: MESNA
     Indication: PROPHYLAXIS
     Route: 042
     Dates: start: 20200604, end: 20200608

REACTIONS (2)
  - Pyrexia [Recovered/Resolved]
  - Cytopenia [Recovering/Resolving]

NARRATIVE: CASE EVENT DATE: 20200609
